FAERS Safety Report 21372785 (Version 4)
Quarter: 2024Q3

REPORT INFORMATION
  Report Type: Report from Study
  Country: EG (occurrence: EG)
  Receive Date: 20220924
  Receipt Date: 20240920
  Transmission Date: 20241017
  Serious: Yes (Other)
  Sender: NOVARTIS
  Company Number: EG-NOVARTISPH-NVSC2022EG216410

PATIENT
  Age: 55 Year
  Sex: Male
  Weight: 74 kg

DRUGS (4)
  1. COSENTYX [Suspect]
     Active Substance: SECUKINUMAB
     Indication: Psoriasis
     Dosage: 1 DOSAGE FORM, QW (2 PENS EVERY MONTH FOR 6 MONTHS)
     Route: 058
     Dates: start: 20211006, end: 202202
  2. COSENTYX [Suspect]
     Active Substance: SECUKINUMAB
     Dosage: 2 DOSAGE FORM, QW (FOR 4 WEEKS THEN 2 PREFILLED PENS OF COSENTYX 150MG EVERY MONTH FOR 6 MONTHS)
     Route: 058
     Dates: start: 20211025, end: 20220425
  3. COSENTYX [Suspect]
     Active Substance: SECUKINUMAB
     Dosage: 1 DOSAGE FORM, QMO
     Route: 058
     Dates: start: 20220925
  4. COSENTYX [Suspect]
     Active Substance: SECUKINUMAB
     Dosage: 1 DOSAGE FORM, QMO
     Route: 058
     Dates: start: 20221126

REACTIONS (8)
  - Symptom recurrence [Not Recovered/Not Resolved]
  - Nail psoriasis [Recovering/Resolving]
  - Product use issue [Recovered/Resolved]
  - Mental disorder [Not Recovered/Not Resolved]
  - Rebound psoriasis [Unknown]
  - Inappropriate schedule of product administration [Recovered/Resolved]
  - Drug ineffective [Not Recovered/Not Resolved]
  - Off label use [Recovered/Resolved]

NARRATIVE: CASE EVENT DATE: 20211006
